FAERS Safety Report 22090362 (Version 1)
Quarter: 2023Q1

REPORT INFORMATION
  Report Type: Spontaneous
  Country: US (occurrence: None)
  Receive Date: 20230313
  Receipt Date: 20230313
  Transmission Date: 20230417
  Serious: Yes (Death)
  Sender: FDA-Public Use
  Company Number: None

PATIENT
  Age: 63 Year
  Sex: Male

DRUGS (1)
  1. VELTASSA [Suspect]
     Active Substance: PATIROMER
     Indication: Hyperkalaemia
     Dosage: 8.4 GM ONCE DAILY ORALLY
     Route: 048
     Dates: start: 20230215, end: 20230227

REACTIONS (1)
  - Death [None]

NARRATIVE: CASE EVENT DATE: 20230227
